FAERS Safety Report 7656765 (Version 2)
Quarter: 2012Q4

REPORT INFORMATION
  Report Type: Report from Study
  Country: US (occurrence: US)
  Receive Date: 20101104
  Receipt Date: 20121030
  Transmission Date: 20130627
  Serious: No
  Sender: FDA-Public Use
  Company Number: US-ABBOTT-10P-163-0637057-00

PATIENT
  Age: 31 Year
  Sex: Female

DRUGS (3)
  1. KALETRA TABLETS [Suspect]
     Indication: HIV INFECTION
     Dates: start: 20090801
  2. ZIDOVUDINE W/LAMIVUDINE [Suspect]
     Indication: HIV INFECTION
     Dates: start: 20090801
  3. ZIDOVUDINE [Suspect]
     Indication: HIV INFECTION
     Dates: start: 20100402, end: 20100402

REACTIONS (1)
  - Polyhydramnios [Not Recovered/Not Resolved]
